FAERS Safety Report 4696597-7 (Version None)
Quarter: 2005Q2

REPORT INFORMATION
  Report Type: 
  Country: None (occurrence: None)
  Receive Date: 20050620
  Receipt Date: 20050406
  Transmission Date: 20051028
  Serious: Yes (Other)
  Sender: FDA-Public Use
  Company Number: 200512886US

PATIENT
  Age: 70 Year
  Sex: Female

DRUGS (9)
  1. LANTUS [Suspect]
     Dosage: 20 U QD SC
     Route: 058
  2. OPTICLIK [Suspect]
     Indication: DIABETES MELLITUS INSULIN-DEPENDENT
     Dates: start: 20050406
  3. HUMALOG [Concomitant]
  4. ASCORBIC ACID, FERROUS FUMARATE (VITRON-C) [Concomitant]
  5. NORVASC [Concomitant]
  6. DIOVAN [Concomitant]
  7. ALLEGRA [Concomitant]
  8. TOPAMAX [Concomitant]
  9. ASPIRIN [Concomitant]

REACTIONS (3)
  - HYPERGLYCAEMIA [None]
  - HYPOGLYCAEMIA [None]
  - OVERDOSE [None]
